FAERS Safety Report 5357283-3 (Version None)
Quarter: 2007Q2

REPORT INFORMATION
  Report Type: 
  Country: None (occurrence: None)
  Receive Date: 20070614
  Receipt Date: 20070606
  Transmission Date: 20071010
  Serious: Yes (Death, Congenital Anomaly)
  Sender: FDA-Public Use
  Company Number: GB-JNJFOC-20070602565

PATIENT

DRUGS (1)
  1. VERMOX [Suspect]
     Indication: DRUG EXPOSURE DURING PREGNANCY

REACTIONS (1)
  - TRISOMY 21 [None]
